FAERS Safety Report 9444986 (Version 2)
Quarter: 2013Q3

REPORT INFORMATION
  Report Type: Spontaneous
  Country: US (occurrence: US)
  Receive Date: 20130807
  Receipt Date: 20130920
  Transmission Date: 20140515
  Serious: Yes (Other)
  Sender: FDA-Public Use
  Company Number: US-FRI-1000047512

PATIENT
  Sex: Female
  Weight: 90.2 kg

DRUGS (7)
  1. VIIBRYD [Suspect]
     Indication: DEPRESSION
     Dosage: 10 MG
     Route: 048
     Dates: start: 20130521, end: 20130527
  2. VIIBRYD [Suspect]
     Dosage: 20 MG
     Route: 048
     Dates: start: 20130528, end: 20130603
  3. VIIBRYD [Suspect]
     Indication: DEPRESSION
     Dosage: 40 MG
     Route: 048
     Dates: start: 20130604, end: 20130610
  4. VIIBRYD [Suspect]
     Indication: DEPRESSION
     Dosage: 20 MG
     Route: 048
     Dates: start: 20130611, end: 20130702
  5. LEVOXYL [Concomitant]
     Indication: HYPOTHYROIDISM
     Dosage: 50 MCG
  6. OMEPRAZOLE [Concomitant]
     Dosage: 40 MG
  7. BENICAR [Concomitant]
     Dosage: 40 MG

REACTIONS (3)
  - Hepatitis [Recovered/Resolved]
  - Visual impairment [Unknown]
  - Dizziness [Unknown]
